FAERS Safety Report 6754001-9 (Version None)
Quarter: 2010Q2

REPORT INFORMATION
  Report Type: 
  Country: None (occurrence: None)
  Receive Date: 20100603
  Receipt Date: 20100526
  Transmission Date: 20101027
  Serious: Yes (Death)
  Sender: FDA-Public Use
  Company Number: B0653515A

PATIENT
  Sex: Male

DRUGS (4)
  1. SERETIDE [Suspect]
     Indication: ASTHMA
     Dosage: 200MCG PER DAY
     Route: 055
     Dates: start: 20100113
  2. SINGULAIR [Concomitant]
     Indication: ASTHMA
     Dosage: 5MG PER DAY
     Route: 048
     Dates: start: 20091001
  3. ALDECIN [Concomitant]
     Indication: RHINITIS
     Dosage: 100MCG PER DAY
     Route: 045
     Dates: start: 20070601
  4. KIPRES [Concomitant]
     Indication: ASTHMA
     Dosage: 5MG PER DAY
     Route: 048
     Dates: start: 20090101, end: 20091001

REACTIONS (2)
  - AORTIC DISSECTION RUPTURE [None]
  - CARDIAC TAMPONADE [None]
